FAERS Safety Report 4786129-7 (Version None)
Quarter: 2005Q3

REPORT INFORMATION
  Report Type: 
  Country: None (occurrence: None)
  Receive Date: 20050930
  Receipt Date: 20050202
  Transmission Date: 20060218
  Serious: Yes (Hospitalization)
  Sender: FDA-Public Use
  Company Number: 2005FR-00285

PATIENT
  Age: 80 Year
  Sex: Female

DRUGS (2)
  1. ASPIRIN [Suspect]
     Indication: COAGULOPATHY
     Dosage: 75 MG OD ORAL
     Route: 048
     Dates: end: 20050101
  2. LOSARTAN POTASSIUM [Concomitant]

REACTIONS (5)
  - DIZZINESS [None]
  - GASTROINTESTINAL ULCER [None]
  - MACULAR DEGENERATION [None]
  - PALPITATIONS [None]
  - THROMBOSIS [None]
